FAERS Safety Report 6641973-6 (Version None)
Quarter: 2010Q1

REPORT INFORMATION
  Report Type: 
  Country: None (occurrence: None)
  Receive Date: 20100319
  Receipt Date: 20100316
  Transmission Date: 20100710
  Serious: Yes (Hospitalization)
  Sender: FDA-Public Use
  Company Number: US-BAYER-201013219BCC

PATIENT
  Age: 54 Year
  Sex: Female
  Weight: 69 kg

DRUGS (3)
  1. ALEVE (CAPLET) [Suspect]
     Indication: ARTHRITIS
     Dosage: TOOK 1 OR 2 CAPLETS DAILY / BOTTLE COUNT 6S
     Route: 048
     Dates: start: 20100301, end: 20100301
  2. ASPIRIN [Concomitant]
     Route: 065
  3. VITAMIN TAB [Concomitant]
     Route: 065

REACTIONS (3)
  - CHEST PAIN [None]
  - GASTROOESOPHAGEAL REFLUX DISEASE [None]
  - NON-CARDIAC CHEST PAIN [None]
